FAERS Safety Report 4394930-7 (Version None)
Quarter: 2004Q3

REPORT INFORMATION
  Report Type: 
  Country: None (occurrence: None)
  Receive Date: 20040712
  Receipt Date: 20040505
  Transmission Date: 20050211
  Serious: Yes (Life-Threatening)
  Sender: FDA-Public Use
  Company Number: BE-GLAXOSMITHKLINE-B0332001A

PATIENT
  Age: 9 Year
  Sex: Female
  Weight: 36 kg

DRUGS (3)
  1. AUGMENTIN '125' [Suspect]
     Indication: ACUTE TONSILLITIS
     Dosage: 500MG THREE TIMES PER DAY
     Route: 048
     Dates: start: 20040430, end: 20040506
  2. CLAMOXYL [Concomitant]
     Indication: PYREXIA
  3. JUNIFEN [Concomitant]
     Route: 048
     Dates: start: 20040430, end: 20040510

REACTIONS (14)
  - ANOREXIA [None]
  - BLOOD CREATININE DECREASED [None]
  - BODY TEMPERATURE INCREASED [None]
  - C-REACTIVE PROTEIN INCREASED [None]
  - ERYTHEMA MULTIFORME [None]
  - GENERAL PHYSICAL HEALTH DETERIORATION [None]
  - HYPOTENSION [None]
  - LYMPHOCYTE COUNT DECREASED [None]
  - LYMPHOPENIA [None]
  - MONOCYTE COUNT DECREASED [None]
  - NAUSEA [None]
  - NEUTROPHIL COUNT INCREASED [None]
  - PRURITUS [None]
  - URTICARIA [None]
